FAERS Safety Report 6926242-9 (Version None)
Quarter: 2010Q3

REPORT INFORMATION
  Report Type: 
  Country: None (occurrence: None)
  Receive Date: 20100816
  Receipt Date: 20100804
  Transmission Date: 20110219
  Serious: Yes (Disabling, Other)
  Sender: FDA-Public Use
  Company Number: US-PFIZER INC-2010098767

PATIENT
  Sex: Male
  Weight: 136.05 kg

DRUGS (12)
  1. LYRICA [Suspect]
     Indication: PERIPHERAL ARTERIAL OCCLUSIVE DISEASE
     Dosage: 75 MG, 2X/DAY
     Route: 048
     Dates: start: 20100401
  2. ACETYLSALICYLIC ACID [Concomitant]
     Dosage: DAILY
  3. CILOSTAZOL [Concomitant]
     Indication: PERIPHERAL ARTERIAL OCCLUSIVE DISEASE
     Dosage: 100 MG, 2X/DAY
  4. FUROSEMIDE [Concomitant]
     Indication: FLUID OVERLOAD
     Dosage: 20 MG, DAILY
  5. ISOSORBIDE MONONITRATE [Concomitant]
     Indication: CARDIAC DISORDER
     Dosage: 30 MG, DAILY
  6. METOPROLOL SUCCINATE [Concomitant]
     Indication: CARDIAC DISORDER
     Dosage: 200 MG, DAILY
  7. METOPROLOL SUCCINATE [Concomitant]
     Indication: HYPERTENSION
  8. MONTELUKAST [Concomitant]
     Indication: DYSPNOEA
     Dosage: 10 MG, DAILY
  9. POTASSIUM [Concomitant]
     Dosage: 8 MG, DAILY
  10. URSODIOL [Concomitant]
     Indication: BILIARY CIRRHOSIS PRIMARY
     Dosage: 1000 MG, 2X/DAY
     Route: 048
  11. VALSARTAN [Concomitant]
     Indication: CARDIAC DISORDER
     Dosage: 80 MG, DAILY
  12. ZETIA [Concomitant]
     Dosage: 10 MG, DAILY
     Route: 048

REACTIONS (2)
  - VISION BLURRED [None]
  - VISUAL IMPAIRMENT [None]
